FAERS Safety Report 20618630 (Version 1)
Quarter: 2022Q1

REPORT INFORMATION
  Report Type: Spontaneous
  Country: JP (occurrence: JP)
  Receive Date: 20220322
  Receipt Date: 20220322
  Transmission Date: 20220423
  Serious: Yes (Death, Life-Threatening, Hospitalization)
  Sender: FDA-Public Use
  Company Number: JP-STRIDES ARCOLAB LIMITED-2022SP002837

PATIENT
  Age: 68 Year
  Sex: Male
  Weight: 75 kg

DRUGS (12)
  1. PREDNISOLONE [Suspect]
     Active Substance: PREDNISOLONE
     Indication: Lung infiltration
     Dosage: 60 MILLIGRAM PER DAY
     Route: 065
  2. PREDNISOLONE [Suspect]
     Active Substance: PREDNISOLONE
     Indication: Acute respiratory distress syndrome
     Dosage: 40 MILLIGRAM PER DAY (DOSE REDUCED BY DAY 17)
     Route: 065
  3. PREDNISOLONE [Suspect]
     Active Substance: PREDNISOLONE
     Dosage: 100 MILLIGRAM PER DAY (ON DAY 21)
     Route: 065
  4. PREDNISOLONE [Suspect]
     Active Substance: PREDNISOLONE
     Dosage: 100 MILLIGRAM PER DAY
     Route: 065
  5. PREDNISOLONE [Suspect]
     Active Substance: PREDNISOLONE
     Dosage: 80 MILLIGRAM PER DAY
     Route: 065
  6. PREDNISOLONE [Suspect]
     Active Substance: PREDNISOLONE
     Dosage: 60 MILLIGRAM PER DAY
     Route: 065
  7. METHYLPREDNISOLONE [Suspect]
     Active Substance: METHYLPREDNISOLONE
     Indication: Lung infiltration
     Dosage: 1 GRAM PER DAY
     Route: 042
  8. METHYLPREDNISOLONE [Suspect]
     Active Substance: METHYLPREDNISOLONE
     Indication: Acute respiratory distress syndrome
     Dosage: 1 GRAM PER DAY (RECEIVED FOLLOWING RE-INTUBATION ON DAY 18)
     Route: 042
  9. LEVOFLOXACIN [Concomitant]
     Active Substance: LEVOFLOXACIN
     Indication: Respiratory failure
     Dosage: 500 MILLIGRAM PER DAY
     Route: 042
  10. AMPICILLIN SODIUM\SULBACTAM SODIUM [Concomitant]
     Active Substance: AMPICILLIN SODIUM\SULBACTAM SODIUM
     Indication: Respiratory failure
     Dosage: 9 GRAM PER DAY
     Route: 042
  11. METFORMIN HYDROCHLORIDE [Concomitant]
     Active Substance: METFORMIN HYDROCHLORIDE
     Indication: Type 2 diabetes mellitus
     Dosage: 750 MILLIGRAM PER DAY
     Route: 065
  12. VALSARTAN [Concomitant]
     Active Substance: VALSARTAN
     Indication: Hypertension
     Dosage: 80 MILLIGRAM PER DAY
     Route: 065

REACTIONS (4)
  - Amoebic colitis [Fatal]
  - Enterocolitis viral [Fatal]
  - Cytomegalovirus infection [Fatal]
  - Gastrointestinal perforation [Fatal]
